FAERS Safety Report 19257789 (Version 12)
Quarter: 2024Q1

REPORT INFORMATION
  Report Type: Report from Study
  Country: MX (occurrence: MX)
  Receive Date: 20210514
  Receipt Date: 20240212
  Transmission Date: 20240409
  Serious: Yes (Life-Threatening, Other)
  Sender: FDA-Public Use
  Company Number: NVSC2021MX101348

PATIENT
  Age: 70 Year
  Sex: Male
  Weight: 66.2 kg

DRUGS (18)
  1. COSENTYX [Suspect]
     Active Substance: SECUKINUMAB
     Indication: Psoriasis
     Dosage: 300 MG, QMO
     Route: 058
     Dates: start: 20201228, end: 20210125
  2. COSENTYX [Suspect]
     Active Substance: SECUKINUMAB
     Dosage: 300 MG
     Route: 058
     Dates: start: 20210128, end: 20210429
  3. COSENTYX [Suspect]
     Active Substance: SECUKINUMAB
     Dosage: 300 MG
     Route: 058
     Dates: start: 20210521, end: 20210628
  4. DAIVOBET [Concomitant]
     Active Substance: BETAMETHASONE DIPROPIONATE\CALCIPOTRIENE
     Indication: Psoriasis
     Dosage: UNK
     Route: 061
     Dates: start: 20201204, end: 20210429
  5. LOSARTAN/HIDROCLOTIAZIDA [Concomitant]
     Indication: Hypertension
     Dosage: 50 MG/12.5 MG, BID
     Route: 048
     Dates: start: 20201228, end: 20210429
  6. TRETINOIN [Concomitant]
     Active Substance: TRETINOIN
     Indication: Psoriasis
     Dosage: UNK
     Route: 061
     Dates: start: 20201020, end: 20210429
  7. METFORMIN [Concomitant]
     Active Substance: METFORMIN HYDROCHLORIDE
     Indication: Diabetes mellitus
     Dosage: UNK UNK, TID
     Route: 065
     Dates: start: 20201020, end: 20210429
  8. METFORMIN [Concomitant]
     Active Substance: METFORMIN HYDROCHLORIDE
     Dosage: 850 MG, BID
     Route: 048
  9. METFORMIN [Concomitant]
     Active Substance: METFORMIN HYDROCHLORIDE
     Dosage: UNK
     Route: 065
     Dates: end: 20210628
  10. ESCITALOPRAM [Concomitant]
     Active Substance: ESCITALOPRAM OXALATE
     Indication: Insomnia
     Dosage: 10 MG, QD
     Route: 048
     Dates: start: 20200612, end: 20210429
  11. LEVOFLOXACIN [Concomitant]
     Active Substance: LEVOFLOXACIN
     Indication: Product used for unknown indication
     Dosage: 750 MG, QD
     Route: 048
     Dates: start: 20210429, end: 20210508
  12. FUROSEMIDE [Concomitant]
     Active Substance: FUROSEMIDE
     Indication: Product used for unknown indication
     Dosage: 10 MG, QD
     Route: 048
     Dates: start: 20210411, end: 20210429
  13. DUTASTERIDE [Concomitant]
     Active Substance: DUTASTERIDE
     Indication: Product used for unknown indication
     Dosage: UNK
     Route: 065
  14. TAMSULOSIN [Concomitant]
     Active Substance: TAMSULOSIN
     Indication: Product used for unknown indication
     Dosage: 0.4 MG, QD
     Route: 048
     Dates: start: 20210411
  15. METOCLOPRAMIDE [Concomitant]
     Active Substance: METOCLOPRAMIDE
     Indication: Product used for unknown indication
     Dosage: 10 MG, QD
     Route: 048
     Dates: start: 20210411, end: 20210429
  16. METOPROLOL [Concomitant]
     Active Substance: METOPROLOL
     Indication: Product used for unknown indication
     Dosage: 100 MG, QD
     Route: 048
     Dates: start: 20210411, end: 20210429
  17. INSULIN NOS [Concomitant]
     Active Substance: INSULIN NOS
     Indication: Product used for unknown indication
     Dosage: UNK UNK, QD (18-240: UI, 241-300: UI, 301-400: 6UI, }400: 8UI)
     Route: 058
     Dates: start: 20210411
  18. SACCHAROMYCES CEREVISIAE [Concomitant]
     Active Substance: SACCHAROMYCES CEREVISIAE
     Indication: Product used for unknown indication
     Dosage: 200 MG, QD
     Route: 048
     Dates: start: 20210429, end: 20210512

REACTIONS (17)
  - Colitis ulcerative [Recovering/Resolving]
  - Haematochezia [Unknown]
  - Lower gastrointestinal haemorrhage [Unknown]
  - Weight decreased [Unknown]
  - Abdominal pain [Unknown]
  - Pyrexia [Unknown]
  - Diarrhoea [Unknown]
  - Gastrointestinal infection [Recovered/Resolved]
  - General physical health deterioration [Recovered/Resolved]
  - Diarrhoea [Recovered/Resolved]
  - Tricuspid valve incompetence [Not Recovered/Not Resolved]
  - Gastroenteritis bacterial [Recovered/Resolved]
  - Pulmonary hypertension [Not Recovered/Not Resolved]
  - Cardiac failure [Not Recovered/Not Resolved]
  - Benign prostatic hyperplasia [Recovering/Resolving]
  - Gastroenteritis [Recovering/Resolving]
  - Gastrointestinal infection [Recovered/Resolved]

NARRATIVE: CASE EVENT DATE: 20210330
